FAERS Safety Report 24398530 (Version 9)
Quarter: 2025Q2

REPORT INFORMATION
  Report Type: Report from Study
  Country: US (occurrence: US)
  Receive Date: 20241004
  Receipt Date: 20250611
  Transmission Date: 20250716
  Serious: Yes (Other)
  Sender: UCB
  Company Number: US-UCBSA-2024050121

PATIENT
  Sex: Male
  Weight: 53.3 kg

DRUGS (30)
  1. FINTEPLA [Suspect]
     Active Substance: FENFLURAMINE
     Indication: Lennox-Gastaut syndrome
     Dosage: 5.9 MILLILITER, 2X/DAY (BID)
     Route: 048
     Dates: start: 20240913, end: 2024
  2. FINTEPLA [Suspect]
     Active Substance: FENFLURAMINE
     Dosage: 4.5 MILLILITER, 2X/DAY (BID)
     Route: 048
     Dates: start: 2024
  3. FINTEPLA [Suspect]
     Active Substance: FENFLURAMINE
     Dosage: 4.5 MILLILITER, 2X/DAY (BID)
     Dates: start: 2024
  4. FINTEPLA [Suspect]
     Active Substance: FENFLURAMINE
     Dosage: 4.5 MILLILITER, 2X/DAY (BID)
  5. FINTEPLA [Suspect]
     Active Substance: FENFLURAMINE
     Route: 048
     Dates: start: 20250422
  6. EPIDIOLEX [Concomitant]
     Active Substance: CANNABIDIOL
     Indication: Product used for unknown indication
     Dosage: 500 MILLIGRAM VIA GASTRECTOMY TUBE, 2X/DAY (BID)
  7. EPIDIOLEX [Concomitant]
     Active Substance: CANNABIDIOL
     Dosage: 5 MILLILITER, 2X/DAY (BID)
     Route: 048
     Dates: start: 20250501
  8. LEVETIRACETAM [Concomitant]
     Active Substance: LEVETIRACETAM
     Indication: Product used for unknown indication
     Dosage: 1500 MILLIGRAM VIA GASTRECTOMY TUBE, 2X/DAY (BID)
  9. LEVETIRACETAM [Concomitant]
     Active Substance: LEVETIRACETAM
     Dosage: 15 MILLILITER, 2X/DAY (BID)
     Route: 048
     Dates: start: 20250221
  10. VALPROIC ACID [Concomitant]
     Active Substance: VALPROIC ACID
     Indication: Product used for unknown indication
     Dosage: 400 MILLIGRAM VIA GASTRECTOMY TUBE, 3X/DAY (TID)
  11. ACETAMINOPHEN [Concomitant]
     Active Substance: ACETAMINOPHEN
     Indication: Product used for unknown indication
     Dosage: 11.41 MILLILITER, 4X/DAY (QID), AS NEEDED.
     Route: 048
     Dates: start: 20170429
  12. BACITRACIN [Concomitant]
     Active Substance: BACITRACIN
     Indication: Skin infection
     Dosage: UNK, 3X/DAY (TID)
     Route: 061
     Dates: start: 20240604
  13. CENOBAMATE [Concomitant]
     Active Substance: CENOBAMATE
     Indication: Product used for unknown indication
     Dosage: 12.5 MILLIGRAM, ONCE DAILY (QD)
     Route: 048
     Dates: start: 20250424
  14. CENOBAMATE [Concomitant]
     Active Substance: CENOBAMATE
     Dosage: 25 MILLIGRAM, ONCE DAILY (QD)
     Route: 048
  15. CENOBAMATE [Concomitant]
     Active Substance: CENOBAMATE
     Dosage: 50 MILLIGRAM, ONCE DAILY (QD)
     Route: 048
  16. CENOBAMATE [Concomitant]
     Active Substance: CENOBAMATE
     Dosage: 100 MILLIGRAM, ONCE DAILY (QD)
     Route: 048
  17. CENOBAMATE [Concomitant]
     Active Substance: CENOBAMATE
     Dosage: 150 MILLIGRAM, ONCE DAILY (QD)
     Route: 048
  18. CENOBAMATE [Concomitant]
     Active Substance: CENOBAMATE
     Dosage: 200 MILLIGRAM, ONCE DAILY (QD)
     Route: 048
  19. CLORAZEPATE DIPOTASSIUM [Concomitant]
     Active Substance: CLORAZEPATE DIPOTASSIUM
     Indication: Lennox-Gastaut syndrome
     Dosage: 3.75 MILLIGRAM, 2X/DAY (BID)
     Route: 048
     Dates: start: 20241219
  20. IBUPROFEN [Concomitant]
     Active Substance: IBUPROFEN
     Indication: Pain
     Dosage: 18 MILLILITER, 4X/DAY (QID)
     Route: 048
     Dates: start: 20170429
  21. KETOCONAZOLE [Concomitant]
     Active Substance: KETOCONAZOLE
     Indication: Product used for unknown indication
     Dosage: UNK, 2X/DAY (BID)
     Route: 061
     Dates: start: 20230130
  22. MENTHOL;ZINC OXIDE [Concomitant]
     Indication: Product used for unknown indication
     Dosage: UNK, 3X/DAY (TID)
     Route: 061
     Dates: start: 20191022
  23. NAYZILAM [Concomitant]
     Active Substance: MIDAZOLAM
     Indication: Seizure
     Route: 045
     Dates: start: 20250219
  24. MIDAZOLAM [Concomitant]
     Active Substance: MIDAZOLAM
     Indication: Seizure
     Route: 045
     Dates: start: 20241118
  25. NYSTATIN [Concomitant]
     Active Substance: NYSTATIN
     Indication: Skin infection
     Dosage: UNK, 2X/DAY (BID)
     Route: 061
     Dates: start: 20230507
  26. NYSTATIN [Concomitant]
     Active Substance: NYSTATIN
     Indication: Scrotal dermatitis
     Dosage: UNK, 2X/DAY (BID)
     Route: 061
     Dates: start: 20241115
  27. POVIDONE-IODINE [Concomitant]
     Active Substance: POVIDONE-IODINE
     Indication: Cerebral palsy
     Dates: start: 20220929
  28. POVIDONE-IODINE [Concomitant]
     Active Substance: POVIDONE-IODINE
     Indication: Lennox-Gastaut syndrome
  29. POVIDONE-IODINE [Concomitant]
     Active Substance: POVIDONE-IODINE
     Indication: Epilepsy
  30. SODIUM CHLORIDE [Concomitant]
     Active Substance: SODIUM CHLORIDE
     Indication: Bladder irrigation
     Dates: start: 20250415

REACTIONS (14)
  - Generalised tonic-clonic seizure [Not Recovered/Not Resolved]
  - Seizure [Recovered/Resolved]
  - Decreased appetite [Not Recovered/Not Resolved]
  - Fatigue [Not Recovered/Not Resolved]
  - Drooling [Not Recovered/Not Resolved]
  - Diarrhoea [Not Recovered/Not Resolved]
  - Decreased interest [Not Recovered/Not Resolved]
  - Sedation [Recovered/Resolved]
  - Urinary tract infection [Not Recovered/Not Resolved]
  - Constipation [Not Recovered/Not Resolved]
  - Wisdom teeth removal [Not Recovered/Not Resolved]
  - Weight decreased [Not Recovered/Not Resolved]
  - Drug ineffective [Unknown]
  - Product use issue [Unknown]

NARRATIVE: CASE EVENT DATE: 20240101
